FAERS Safety Report 8206286-X (Version None)
Quarter: 2012Q1

REPORT INFORMATION
  Report Type: 
  Country: None (occurrence: None)
  Receive Date: 20120313
  Receipt Date: 20120305
  Transmission Date: 20120608
  Serious: Yes (Disabling)
  Sender: FDA-Public Use
  Company Number: PHEH2012US005604

PATIENT
  Sex: Female

DRUGS (1)
  1. GILENYA [Suspect]
     Dosage: 0.5 MG,
     Route: 048
     Dates: start: 20110901, end: 20111001

REACTIONS (2)
  - BLINDNESS [None]
  - VISUAL IMPAIRMENT [None]
